FAERS Safety Report 8393909-8 (Version None)
Quarter: 2012Q2

REPORT INFORMATION
  Report Type: 
  Country: None (occurrence: None)
  Receive Date: 20120516
  Receipt Date: 20120510
  Transmission Date: 20120825
  Serious: Yes (Other)
  Sender: FDA-Public Use
  Company Number: WAES 1204GBR00045

PATIENT
  Age: 44 Year
  Sex: Female

DRUGS (2)
  1. MONTELUKAST SODIUM [Suspect]
     Indication: COUGH
     Dosage: 1 TAB DAILY PO
     Route: 048
     Dates: start: 20120411, end: 20120411
  2. ERYTHROMYCIN [Concomitant]

REACTIONS (3)
  - OFF LABEL USE [None]
  - DYSPNOEA [None]
  - THROAT TIGHTNESS [None]
